FAERS Safety Report 13834429 (Version 1)
Quarter: 2017Q3

REPORT INFORMATION
  Report Type: Spontaneous
  Country: US (occurrence: US)
  Receive Date: 20170804
  Receipt Date: 20170804
  Transmission Date: 20171127
  Serious: No
  Sender: FDA-Public Use
  Company Number: US-PRINSTON PHARMACEUTICAL INC.-2017PRN00277

PATIENT
  Sex: Male

DRUGS (8)
  1. INLYTA [Suspect]
     Active Substance: AXITINIB
     Indication: RENAL CANCER
     Dosage: 10 MG, 2X/DAY
  2. SENNA S [Concomitant]
     Active Substance: DOCUSATE SODIUM\SENNA LEAF
     Dosage: 1 DOSAGE UNITS, 1X/DAY
  3. RITALIN [Suspect]
     Active Substance: METHYLPHENIDATE HYDROCHLORIDE
     Indication: SLEEP DISORDER
     Dosage: 10 MG, 1X/DAY
     Dates: end: 20160905
  4. OMEPRAZOLE. [Suspect]
     Active Substance: OMEPRAZOLE
     Indication: GASTROOESOPHAGEAL REFLUX DISEASE
     Dosage: 20 MG, 1X/DAY
     Dates: start: 2015
  5. OLANZAPINE. [Concomitant]
     Active Substance: OLANZAPINE
     Dosage: 1 DOSAGE UNITS, 1X/DAY
  6. LISINOPRIL. [Suspect]
     Active Substance: LISINOPRIL
     Indication: HYPERTENSION
     Dosage: 20 MG, 2X/DAY
     Route: 065
     Dates: start: 2015
  7. LEVOTHYROXINE SODIUM TABLETS [Suspect]
     Active Substance: LEVOTHYROXINE SODIUM
     Indication: THYROID DISORDER
     Dosage: 75 ?G, 1X/DAY
  8. PREDNISONE TABLETS [Suspect]
     Active Substance: PREDNISONE
     Indication: ADRENAL DISORDER
     Dosage: 5 MG, 1X/DAY

REACTIONS (1)
  - No adverse event [Not Recovered/Not Resolved]

NARRATIVE: CASE EVENT DATE: 2016
